FAERS Safety Report 6450428-3 (Version None)
Quarter: 2009Q4

REPORT INFORMATION
  Report Type: 
  Country: None (occurrence: None)
  Receive Date: 20091116
  Receipt Date: 20090921
  Transmission Date: 20100525
  Serious: No
  Sender: FDA-Public Use
  Company Number: WAES 0902USA04158

PATIENT
  Sex: Female

DRUGS (2)
  1. ISENTRESS [Suspect]
     Dosage: PO
     Route: 048
  2. ANTIMICROBIAL (UNSPECIFIED) UNK [Suspect]

REACTIONS (2)
  - DRUG INTERACTION [None]
  - RASH GENERALISED [None]
